FAERS Safety Report 23302340 (Version 2)
Quarter: 2023Q4

REPORT INFORMATION
  Report Type: Spontaneous
  Country: US (occurrence: US)
  Receive Date: 20231215
  Receipt Date: 20231218
  Transmission Date: 20240109
  Serious: No
  Sender: FDA-Public Use
  Company Number: US-PFIZER INC-PV202300186412

PATIENT
  Age: 13 Year
  Sex: Female
  Weight: 88.889 kg

DRUGS (2)
  1. XELJANZ [Suspect]
     Active Substance: TOFACITINIB CITRATE
     Indication: Alopecia
     Dosage: 5 MG, 2X/DAY (5 MG MORNING, 5 MG EVENING)
     Dates: start: 202209
  2. LEVOTHYROXINE [Concomitant]
     Active Substance: LEVOTHYROXINE
     Dosage: 44 MG

REACTIONS (2)
  - Weight increased [Unknown]
  - Off label use [Unknown]
